FAERS Safety Report 12653282 (Version 8)
Quarter: 2017Q1

REPORT INFORMATION
  Report Type: Spontaneous
  Country: US (occurrence: US)
  Receive Date: 20160815
  Receipt Date: 20170323
  Transmission Date: 20170428
  Serious: Yes (Death, Hospitalization)
  Sender: FDA-Public Use
  Company Number: US-ACTELION-A-US2016-139624

PATIENT
  Age: 79 Year
  Sex: Female
  Weight: 68.27 kg

DRUGS (24)
  1. ATENOLOL. [Concomitant]
     Active Substance: ATENOLOL
     Dosage: UNK
     Dates: start: 20140430
  2. ELIQUIS [Concomitant]
     Active Substance: APIXABAN
  3. LORAZEPAM. [Concomitant]
     Active Substance: LORAZEPAM
  4. MORPHINE SULFATE. [Concomitant]
     Active Substance: MORPHINE SULFATE
  5. POTASSIUM CHLORIDE. [Concomitant]
     Active Substance: POTASSIUM CHLORIDE
  6. ZOFRAN [Concomitant]
     Active Substance: ONDANSETRON HYDROCHLORIDE
  7. UPTRAVI [Suspect]
     Active Substance: SELEXIPAG
     Dosage: 1600 MCG, BID
     Route: 048
  8. DIPHENHYDRAMINE. [Concomitant]
     Active Substance: DIPHENHYDRAMINE
  9. UPTRAVI [Suspect]
     Active Substance: SELEXIPAG
     Dosage: UNK
     Route: 048
     Dates: start: 20160523
  10. ADEMPAS [Concomitant]
     Active Substance: RIOCIGUAT
  11. APIXABAN [Concomitant]
     Active Substance: APIXABAN
     Dosage: UNK
     Dates: start: 20160520
  12. ALBUTEROL. [Concomitant]
     Active Substance: ALBUTEROL
     Dosage: UNK
     Dates: start: 20150528
  13. VANCOMYCIN [Concomitant]
     Active Substance: VANCOMYCIN
  14. ZOSYN [Concomitant]
     Active Substance: PIPERACILLIN SODIUM\TAZOBACTAM SODIUM
  15. OPSUMIT [Suspect]
     Active Substance: MACITENTAN
     Indication: PULMONARY ARTERIAL HYPERTENSION
     Dosage: 10 MG, QD
     Route: 048
     Dates: start: 20160627, end: 20161231
  16. SIMVASTATIN. [Concomitant]
     Active Substance: SIMVASTATIN
     Dosage: UNK
     Dates: start: 20150623
  17. AQUAMEPHYTON [Concomitant]
     Active Substance: PHYTONADIONE
  18. UPTRAVI [Suspect]
     Active Substance: SELEXIPAG
     Indication: PULMONARY ARTERIAL HYPERTENSION
     Dosage: 1400 MCG, BID
     Route: 048
     Dates: start: 20160523
  19. TYLENOL [Concomitant]
     Active Substance: ACETAMINOPHEN
  20. NYSTATIN. [Concomitant]
     Active Substance: NYSTATIN
  21. DILTIAZEM. [Concomitant]
     Active Substance: DILTIAZEM
  22. UPTRAVI [Suspect]
     Active Substance: SELEXIPAG
     Dosage: 1200 MCG, BID
     Route: 048
  23. SYMBICORT [Concomitant]
     Active Substance: BUDESONIDE\FORMOTEROL FUMARATE DIHYDRATE
     Dosage: UNK
     Dates: start: 20150619
  24. LEVOFLOXACIN. [Concomitant]
     Active Substance: LEVOFLOXACIN

REACTIONS (16)
  - Pneumonia [Unknown]
  - Anaemia [Unknown]
  - Headache [Recovering/Resolving]
  - Swelling [Not Recovered/Not Resolved]
  - Pulmonary arterial hypertension [Fatal]
  - Hyponatraemia [Recovered/Resolved]
  - Condition aggravated [Fatal]
  - Dyspnoea [Recovered/Resolved]
  - Oxygen saturation decreased [Recovering/Resolving]
  - Acute respiratory failure [Recovered/Resolved]
  - Fluid overload [Recovered/Resolved]
  - Fluid retention [Recovered/Resolved]
  - Respiratory failure [Recovered/Resolved]
  - Nausea [Recovering/Resolving]
  - Ophthalmoplegic migraine [Recovering/Resolving]
  - Hypoxia [Recovered/Resolved]

NARRATIVE: CASE EVENT DATE: 20160705
